FAERS Safety Report 9402947 (Version 2)
Quarter: 2013Q3

REPORT INFORMATION
  Report Type: Spontaneous
  Country: GB (occurrence: GB)
  Receive Date: 20130716
  Receipt Date: 20130829
  Transmission Date: 20140515
  Serious: Yes (Other)
  Sender: FDA-Public Use
  Company Number: GB-TEVA-417426ISR

PATIENT
  Age: 43 Year
  Sex: Male

DRUGS (3)
  1. MONTELUKAST [Suspect]
     Dosage: 10 MG, DAILY
     Route: 065
  2. SALMETEROL AND FLUTICASONE [Suspect]
     Dosage: 4 PUFFS, DAILY
     Route: 055
  3. VENTOLIN [Suspect]
     Dosage: 1 PUFF, DAILY
     Route: 055

REACTIONS (6)
  - Pigment dispersion syndrome [Unknown]
  - Trabeculectomy [Unknown]
  - Blebitis [Unknown]
  - Tenon^s cyst [Unknown]
  - Diplopia [Unknown]
  - Dysaesthesia [Unknown]
